FAERS Safety Report 22138946 (Version 2)
Quarter: 2023Q2

REPORT INFORMATION
  Report Type: Spontaneous
  Country: GR (occurrence: GR)
  Receive Date: 20230327
  Receipt Date: 20230414
  Transmission Date: 20230721
  Serious: Yes (Death, Hospitalization, Other)
  Sender: FDA-Public Use
  Company Number: GR-CELLTRION INC.-2023GR005989

PATIENT

DRUGS (2)
  1. INFLIXIMAB [Suspect]
     Active Substance: INFLIXIMAB
     Indication: Colitis ulcerative
  2. COVID-19 VACCINE NOS [Suspect]
     Active Substance: COVID-19 VACCINE NOS
     Indication: COVID-19 immunisation

REACTIONS (3)
  - COVID-19 pneumonia [Fatal]
  - Breakthrough COVID-19 [Unknown]
  - Vaccination failure [Unknown]
